FAERS Safety Report 22803435 (Version 3)
Quarter: 2023Q4

REPORT INFORMATION
  Report Type: Spontaneous
  Country: US (occurrence: US)
  Receive Date: 20230809
  Receipt Date: 20231118
  Transmission Date: 20240109
  Serious: No
  Sender: FDA-Public Use
  Company Number: US-SA-SAC20230808000403

PATIENT
  Age: 63 Year
  Sex: Female

DRUGS (2)
  1. DUPIXENT [Suspect]
     Active Substance: DUPILUMAB
     Indication: Eczema
     Dosage: 300 MG, QOW
     Route: 058
  2. DUPIXENT [Suspect]
     Active Substance: DUPILUMAB
     Indication: Dermatitis atopic

REACTIONS (6)
  - Diarrhoea [Not Recovered/Not Resolved]
  - Dry skin [Unknown]
  - Dyspepsia [Unknown]
  - Urinary tract infection [Recovered/Resolved]
  - White blood cell count increased [Unknown]
  - Dry eye [Unknown]

NARRATIVE: CASE EVENT DATE: 20231031
